FAERS Safety Report 5374437-0 (Version None)
Quarter: 2007Q2

REPORT INFORMATION
  Report Type: 
  Country: None (occurrence: None)
  Receive Date: 20070629
  Receipt Date: 20070618
  Transmission Date: 20071010
  Serious: Yes (Other)
  Sender: FDA-Public Use
  Company Number: US-JNJFOC-20070500200

PATIENT
  Sex: Female
  Weight: 84.37 kg

DRUGS (1)
  1. REMICADE [Suspect]
     Indication: PSORIASIS
     Route: 042

REACTIONS (5)
  - ABDOMINAL PAIN [None]
  - CHEST DISCOMFORT [None]
  - DERMATITIS [None]
  - DYSPNOEA [None]
  - FUNGAL INFECTION [None]
